FAERS Safety Report 4598799-7 (Version None)
Quarter: 2005Q1

REPORT INFORMATION
  Report Type: 
  Country: None (occurrence: None)
  Receive Date: 20050301
  Receipt Date: 20050301
  Transmission Date: 20050727
  Serious: Yes (Hospitalization)
  Sender: FDA-Public Use
  Company Number: None

PATIENT
  Sex: Male

DRUGS (12)
  1. METOLAZONE [Suspect]
     Indication: CARDIAC FAILURE CONGESTIVE
     Dosage: 5 MG BID ORAL
     Route: 048
     Dates: start: 20040920, end: 20041013
  2. WARFARIN SODIUM [Concomitant]
  3. MINOXIDIL [Concomitant]
  4. FUROSEMIDE [Concomitant]
  5. LATANOPROST [Concomitant]
  6. BRIMONIDINE [Concomitant]
  7. PRAZOSIN HCL [Concomitant]
  8. METOPROLL [Concomitant]
  9. INSULIN [Concomitant]
  10. LISINOPRIL [Concomitant]
  11. EPOGEN [Concomitant]
  12. AUGMENTIN '125' [Concomitant]

REACTIONS (1)
  - RENAL FAILURE ACUTE [None]
